FAERS Safety Report 23957071 (Version 1)
Quarter: 2024Q2

REPORT INFORMATION
  Report Type: Spontaneous
  Country: CN (occurrence: None)
  Receive Date: 20240610
  Receipt Date: 20240610
  Transmission Date: 20240716
  Serious: Yes (Other)
  Sender: FDA-Public Use
  Company Number: CN-ROCHE-3576189

PATIENT
  Age: 61 Year
  Sex: Male
  Weight: 83 kg

DRUGS (2)
  1. COLUMVI [Suspect]
     Active Substance: GLOFITAMAB-GXBM
     Indication: Diffuse large B-cell lymphoma
     Route: 065
     Dates: start: 20240508, end: 20240508
  2. SODIUM CHLORIDE [Concomitant]
     Active Substance: SODIUM CHLORIDE
     Dates: start: 20240508, end: 20240508

REACTIONS (4)
  - Somnolence [Recovering/Resolving]
  - Hyperhidrosis [Recovering/Resolving]
  - Temperature intolerance [Recovering/Resolving]
  - Pyrexia [Recovering/Resolving]

NARRATIVE: CASE EVENT DATE: 20240508
